FAERS Safety Report 13943768 (Version 1)
Quarter: 2017Q3

REPORT INFORMATION
  Report Type: Spontaneous
  Country: US (occurrence: US)
  Receive Date: 20170907
  Receipt Date: 20170907
  Transmission Date: 20171128
  Serious: No
  Sender: FDA-Public Use
  Company Number: US-ROCHE-1446997

PATIENT
  Sex: Female

DRUGS (2)
  1. RITUXAN [Suspect]
     Active Substance: RITUXIMAB
     Indication: LYMPHOMA
     Dosage: 2 TREATMENTS, 3 DAYS EVERY MONTH
     Route: 065
     Dates: start: 201309
  2. RITUXAN [Suspect]
     Active Substance: RITUXIMAB
     Dosage: 3 TREATMENTS, 3 DAYS IN A ROW
     Route: 065
     Dates: start: 2005

REACTIONS (3)
  - Restless legs syndrome [Unknown]
  - Lymphoma [Unknown]
  - Drug hypersensitivity [Unknown]
